FAERS Safety Report 6558387-X (Version None)
Quarter: 2010Q1

REPORT INFORMATION
  Report Type: 
  Country: None (occurrence: None)
  Receive Date: 20100129
  Receipt Date: 20100120
  Transmission Date: 20100710
  Serious: Yes (Other)
  Sender: FDA-Public Use
  Company Number: BR-JNJFOC-20100109248

PATIENT
  Age: 33 Year
  Sex: Male
  Weight: 90 kg

DRUGS (4)
  1. HALDOL [Suspect]
     Indication: DRUG USE FOR UNKNOWN INDICATION
     Route: 065
  2. CARBAMAZEPINE [Interacting]
     Indication: DRUG USE FOR UNKNOWN INDICATION
     Route: 065
  3. AMLODIPINE [Concomitant]
     Indication: HYPERTENSION
     Route: 065
  4. HYDROCHLOROTHIAZIDE [Concomitant]
     Indication: DIURETIC THERAPY
     Route: 065

REACTIONS (5)
  - DRUG INTERACTION [None]
  - DRUG PRESCRIBING ERROR [None]
  - ELECTROCARDIOGRAM CHANGE [None]
  - HEART RATE INCREASED [None]
  - MEDICATION ERROR [None]
